FAERS Safety Report 5650052-6 (Version None)
Quarter: 2008Q1

REPORT INFORMATION
  Report Type: 
  Country: None (occurrence: None)
  Receive Date: 20080303
  Receipt Date: 20080219
  Transmission Date: 20080703
  Serious: Yes (Other)
  Sender: FDA-Public Use
  Company Number: 024089

PATIENT
  Age: 40 Year
  Sex: Female

DRUGS (2)
  1. CLARAVIS [Suspect]
     Indication: ACNE
     Dosage: 60 MG, QD, ORAL
     Route: 048
     Dates: start: 20070901, end: 20080219
  2. NORVASC [Concomitant]

REACTIONS (3)
  - BREAST CANCER FEMALE [None]
  - HIGH DENSITY LIPOPROTEIN ABNORMAL [None]
  - LOW DENSITY LIPOPROTEIN ABNORMAL [None]
